FAERS Safety Report 6733275-4 (Version None)
Quarter: 2010Q2

REPORT INFORMATION
  Report Type: 
  Country: None (occurrence: None)
  Receive Date: 20100520
  Receipt Date: 20100511
  Transmission Date: 20101027
  Serious: Yes (Hospitalization)
  Sender: FDA-Public Use
  Company Number: ES-JNJFOC-20100503680

PATIENT
  Age: 5 Decade
  Sex: Male

DRUGS (5)
  1. INTELENCE [Suspect]
     Indication: HIV INFECTION
     Route: 065
  2. IMMUNOSUPPRESSOR [Interacting]
     Indication: IMMUNOSUPPRESSION
     Route: 065
  3. IMMUNOSUPPRESSOR [Interacting]
     Route: 065
  4. RALTEGRAVIR [Concomitant]
     Indication: HIV INFECTION
     Route: 048
  5. TRUVADA [Concomitant]
     Indication: HIV INFECTION
     Route: 048

REACTIONS (3)
  - CHOLESTASIS [None]
  - DRUG INTERACTION [None]
  - RASH [None]
